FAERS Safety Report 5670389-4 (Version None)
Quarter: 2008Q1

REPORT INFORMATION
  Report Type: 
  Country: None (occurrence: None)
  Receive Date: 20080313
  Receipt Date: 20080229
  Transmission Date: 20080703
  Serious: Yes (Other)
  Sender: FDA-Public Use
  Company Number: 231634J07USA

PATIENT
  Age: 29 Year
  Sex: Female

DRUGS (2)
  1. REBIF [Suspect]
     Indication: MULTIPLE SCLEROSIS
     Dosage: 22 MCG, 3 IN 1 WEEKS, SUBCUTANEOUS
     Route: 058
     Dates: start: 20071022, end: 20070101
  2. REBIF [Suspect]
     Indication: MULTIPLE SCLEROSIS
     Dosage: 22 MCG, 3 IN 1 WEEKS, SUBCUTANEOUS
     Route: 058
     Dates: start: 20070101

REACTIONS (13)
  - ATELECTASIS [None]
  - BACK PAIN [None]
  - CHEST DISCOMFORT [None]
  - CHOLELITHIASIS [None]
  - DIARRHOEA [None]
  - HEPATOBILIARY SCAN ABNORMAL [None]
  - LYMPHADENOPATHY [None]
  - NEPHROLITHIASIS [None]
  - OVARIAN CYST [None]
  - PROCEDURAL PAIN [None]
  - PYELONEPHRITIS [None]
  - URETERAL DISORDER [None]
  - WEIGHT DECREASED [None]
